FAERS Safety Report 4832264-4 (Version None)
Quarter: 2005Q4

REPORT INFORMATION
  Report Type: 
  Country: None (occurrence: None)
  Receive Date: 20051119
  Receipt Date: 20051110
  Transmission Date: 20060501
  Serious: Yes (Congenital Anomaly)
  Sender: FDA-Public Use
  Company Number: GB-ABBOTT-05P-167-0317467-00

PATIENT
  Sex: Female

DRUGS (1)
  1. VALPROATE SODIUM [Suspect]
     Indication: DRUG EXPOSURE DURING PREGNANCY

REACTIONS (11)
  - CLEFT PALATE [None]
  - CONGENITAL EYELID MALFORMATION [None]
  - CONGENITAL NOSE MALFORMATION [None]
  - CONGENITAL ORAL MALFORMATION [None]
  - DEVELOPMENTAL DELAY [None]
  - FACIAL DYSMORPHISM [None]
  - FINGER DEFORMITY [None]
  - FOETAL VALPROATE SYNDROME [None]
  - HEAD DEFORMITY [None]
  - HEART DISEASE CONGENITAL [None]
  - KIDNEY MALFORMATION [None]
